FAERS Safety Report 23243173 (Version 2)
Quarter: 2024Q3

REPORT INFORMATION
  Report Type: Report from Study
  Country: US (occurrence: US)
  Receive Date: 20231130
  Receipt Date: 20240806
  Transmission Date: 20241017
  Serious: Yes (Other)
  Sender: ALEXION PHARMACEUTICALS
  Company Number: US-ALXN-A202310320AA

PATIENT
  Age: 66 Year
  Sex: Female

DRUGS (1)
  1. STRENSIQ [Suspect]
     Active Substance: ASFOTASE ALFA
     Indication: Hypophosphatasia
     Dosage: 40 MILLIGRAM. 5DAYS A WEEK
     Route: 065

REACTIONS (5)
  - Multiple fractures [Not Recovered/Not Resolved]
  - Bone pain [Not Recovered/Not Resolved]
  - Fall [Unknown]
  - Foot fracture [Recovering/Resolving]
  - Breast mass [Unknown]

NARRATIVE: CASE EVENT DATE: 20231110
